FAERS Safety Report 9780507 (Version 2)
Quarter: 2014Q1

REPORT INFORMATION
  Report Type: Report from Study
  Country: CA (occurrence: CA)
  Receive Date: 20131224
  Receipt Date: 20140124
  Transmission Date: 20141002
  Serious: Yes (Death, Hospitalization, Other)
  Sender: FDA-Public Use
  Company Number: CA-ABBVIE-13P-028-1182346-00

PATIENT
  Sex: Female
  Weight: 37 kg

DRUGS (1)
  1. HUMIRA [Suspect]
     Indication: CROHN^S DISEASE
     Route: 058
     Dates: start: 201111, end: 201311

REACTIONS (6)
  - Post procedural complication [Fatal]
  - Mental impairment [Fatal]
  - General physical health deterioration [Fatal]
  - Upper gastrointestinal haemorrhage [Fatal]
  - Malnutrition [Fatal]
  - Hip fracture [Unknown]
